FAERS Safety Report 8471583-X (Version None)
Quarter: 2012Q2

REPORT INFORMATION
  Report Type: 
  Country: None (occurrence: None)
  Receive Date: 20120323
  Receipt Date: 20111025
  Transmission Date: 20120825
  Serious: Yes (Hospitalization)
  Sender: FDA-Public Use
  Company Number: 163-21880-11110613

PATIENT
  Age: 80 Year
  Sex: Male

DRUGS (3)
  1. REVLIMID [Suspect]
     Indication: MULTIPLE MYELOMA
     Dosage: 10 MG, X 21 DAYS, PO, 10 MG, QD  X 21 DAYS, PO
     Route: 048
     Dates: start: 20101101
  2. REVLIMID [Suspect]
     Indication: MULTIPLE MYELOMA
     Dosage: 10 MG, X 21 DAYS, PO, 10 MG, QD  X 21 DAYS, PO
     Route: 048
     Dates: start: 20110801
  3. REVLIMID [Suspect]
     Indication: MULTIPLE MYELOMA
     Dosage: 10 MG, X 21 DAYS, PO, 10 MG, QD  X 21 DAYS, PO
     Route: 048
     Dates: start: 20100801

REACTIONS (1)
  - CELLULITIS [None]
